FAERS Safety Report 10700902 (Version 1)
Quarter: 2014Q4

REPORT INFORMATION
  Report Type: Spontaneous
  Country: US (occurrence: None)
  Receive Date: 20141224
  Receipt Date: 20141224
  Transmission Date: 20150529
  Serious: Yes (Other)
  Sender: FDA-Public Use
  Company Number: PHEH2014US004393

PATIENT
  Age: 59 Year
  Sex: Female

DRUGS (2)
  1. EXJADE [Suspect]
     Active Substance: DEFERASIROX
     Route: 048
     Dates: start: 20140224, end: 20140226
  2. EXJADE [Suspect]
     Active Substance: DEFERASIROX
     Indication: HAEMOCHROMATOSIS
     Route: 048
     Dates: start: 20140224, end: 20140226

REACTIONS (6)
  - Lip swelling [None]
  - Swollen tongue [None]
  - Hypersensitivity [None]
  - Hypoaesthesia [None]
  - Paraesthesia [None]
  - Erythema [None]

NARRATIVE: CASE EVENT DATE: 20140226
